FAERS Safety Report 5115336-9 (Version None)
Quarter: 2006Q3

REPORT INFORMATION
  Report Type: 
  Country: None (occurrence: None)
  Receive Date: 20060926
  Receipt Date: 20060918
  Transmission Date: 20061208
  Serious: Yes (Hospitalization)
  Sender: FDA-Public Use
  Company Number: US-ALLERGAN-0605253US

PATIENT
  Sex: Female

DRUGS (3)
  1. BOTOX [Suspect]
     Indication: TORTICOLLIS
     Dosage: UNK, UNKNOWN
     Route: 030
     Dates: start: 19930401, end: 19981201
  2. KLONOPIN [Concomitant]
     Indication: DRUG USE FOR UNKNOWN INDICATION
     Dosage: UNK, QD
     Route: 048
  3. CORGARD [Concomitant]
     Indication: MITRAL VALVE DISEASE
     Route: 048
     Dates: start: 19800101

REACTIONS (3)
  - HYPOKALAEMIA [None]
  - HYPOMAGNESAEMIA [None]
  - RENAL DISORDER [None]
